FAERS Safety Report 4664510-4 (Version None)
Quarter: 2005Q2

REPORT INFORMATION
  Report Type: 
  Country: None (occurrence: None)
  Receive Date: 20050518
  Receipt Date: 20050510
  Transmission Date: 20051028
  Serious: Yes (Hospitalization, Other)
  Sender: FDA-Public Use
  Company Number: US-BOEHRINGER INGELHEIM PHARMACEUTICALS, INC.-2005-BP-07796BP

PATIENT
  Sex: Female

DRUGS (4)
  1. MIRAPEX [Suspect]
     Indication: DEPRESSION
     Route: 048
     Dates: start: 19980101
  2. MIRAPEX [Suspect]
     Indication: BIPOLAR DISORDER
  3. ADDERALL 10 [Concomitant]
  4. AMBIEN [Concomitant]
     Indication: SOMNOLENCE

REACTIONS (5)
  - ADENOCARCINOMA [None]
  - INFLAMMATORY CARCINOMA OF THE BREAST [None]
  - MASTITIS [None]
  - SOMNOLENCE [None]
  - STAPHYLOCOCCAL INFECTION [None]
